FAERS Safety Report 23934462 (Version 3)
Quarter: 2024Q4

REPORT INFORMATION
  Report Type: Spontaneous
  Country: US (occurrence: US)
  Receive Date: 20240603
  Receipt Date: 20241120
  Transmission Date: 20250114
  Serious: No
  Sender: ELI LILLY AND COMPANY
  Company Number: US-ELI_LILLY_AND_COMPANY-US202405018693

PATIENT
  Age: 26 Year
  Sex: Female

DRUGS (2)
  1. TALTZ [Suspect]
     Active Substance: IXEKIZUMAB
     Indication: Psoriasis
     Dosage: 80 MG, OTHER (EVERY 2 WEEKS FOR 5 DOSES)
     Route: 058
  2. TALTZ [Suspect]
     Active Substance: IXEKIZUMAB
     Dosage: 80 MG, EVERY FOUR WEEKS
     Route: 058

REACTIONS (7)
  - Maternal exposure during pregnancy [Unknown]
  - Malaise [Unknown]
  - Product dose omission issue [Unknown]
  - Cough [Unknown]
  - Nasal congestion [Unknown]
  - Ear discomfort [Unknown]
  - Oropharyngeal pain [Unknown]

NARRATIVE: CASE EVENT DATE: 20240730
